FAERS Safety Report 4911396-6 (Version None)
Quarter: 2006Q1

REPORT INFORMATION
  Report Type: 
  Country: None (occurrence: None)
  Receive Date: 20060209
  Receipt Date: 20060128
  Transmission Date: 20060701
  Serious: Yes (Death, Hospitalization)
  Sender: FDA-Public Use
  Company Number: GXKR2006ES00695

PATIENT
  Age: 43 Year
  Sex: Male

DRUGS (3)
  1. DEXAMETHASONE [Suspect]
     Indication: MULTIPLE MYELOMA
     Dosage: 40 MG, ORAL
     Route: 048
     Dates: start: 20040115
  2. VINCRISTINE [Suspect]
     Indication: MULTIPLE MYELOMA
     Dosage: 0.4 MG/M2, INTRAVENOUS
     Route: 042
     Dates: start: 20040115
  3. DOXORUBICIN HCL [Suspect]
     Indication: MULTIPLE MYELOMA
     Dosage: 9 MG/M2, INTRAVENOUS
     Route: 042
     Dates: start: 20040115

REACTIONS (8)
  - ANAEMIA [None]
  - DISEASE PROGRESSION [None]
  - HEPATIC FAILURE [None]
  - HEPATOMEGALY [None]
  - LIGHT CHAIN DISEASE [None]
  - MULTI-ORGAN FAILURE [None]
  - NEPHROTIC SYNDROME [None]
  - RENAL FAILURE [None]
